FAERS Safety Report 26206504 (Version 1)
Quarter: 2025Q4

REPORT INFORMATION
  Report Type: Spontaneous
  Country: US (occurrence: US)
  Receive Date: 20251229
  Receipt Date: 20251229
  Transmission Date: 20260118
  Serious: Yes (Life-Threatening)
  Sender: DEXCEL LTD.
  Company Number: US-MLMSERVICE-20251201-PI732486-00031-1

PATIENT
  Age: 71 Year
  Sex: Female

DRUGS (2)
  1. FUROSEMIDE [Suspect]
     Active Substance: FUROSEMIDE
     Indication: Left ventricular failure
     Dosage: EVERY OTHER DAY
  2. OMEPRAZOLE [Suspect]
     Active Substance: OMEPRAZOLE
     Indication: Gastrooesophageal reflux disease
     Dosage: FOR MANY YEARS

REACTIONS (6)
  - Hypomagnesaemia [Recovered/Resolved]
  - Hypokalaemia [Recovered/Resolved]
  - Hypocalcaemia [Recovered/Resolved]
  - Incorrect product administration duration [Unknown]
  - Incorrect dose administered [Unknown]
  - Drug interaction [Unknown]
